FAERS Safety Report 8515780 (Version 3)
Quarter: 2012Q4

REPORT INFORMATION
  Report Type: Report from Study
  Country: FR (occurrence: FR)
  Receive Date: 20120417
  Receipt Date: 20121015
  Transmission Date: 20130627
  Serious: Yes (Hospitalization)
  Sender: FDA-Public Use
  Company Number: FR-MILLENNIUM PHARMACEUTICALS, INC.-2012-02476

PATIENT
  Age: 71 Year
  Sex: Male
  Weight: 77 kg

DRUGS (14)
  1. VELCADE [Suspect]
     Indication: MULTIPLE MYELOMA
     Dosage: 1 mg/m2, UNK
     Route: 042
     Dates: start: 20120124, end: 20120405
  2. JNJ-26481585 [Suspect]
     Indication: MULTIPLE MYELOMA
     Dosage: 6 mg, UNK
     Route: 048
     Dates: start: 20120123, end: 20120330
  3. DEXAMETHASONE [Suspect]
     Indication: MULTIPLE MYELOMA
     Dosage: 8 mg, UNK
     Route: 048
     Dates: start: 20120124, end: 20120405
  4. ZELITREX                           /01269701/ [Concomitant]
     Indication: PROPHYLAXIS
     Dosage: 500 mg, bid
     Route: 048
  5. ZOMETA [Concomitant]
     Indication: PROPHYLAXIS
     Dosage: 4 mg, UNK
     Route: 042
  6. BI-PROFENID [Concomitant]
     Indication: BACK PAIN
     Dosage: 100 mg, prn
     Route: 048
  7. AERIUS                             /01398501/ [Concomitant]
     Dosage: 5 mg, bid
     Route: 048
  8. TOPALGIC                           /00599202/ [Concomitant]
     Indication: PAIN PROPHYLAXIS
     Dosage: 100 mg, prn
     Route: 048
  9. FORLAX [Concomitant]
     Dosage: 10 mg, bid
     Route: 048
  10. DAFALGAN                           /00020001/ [Concomitant]
     Indication: BACK PAIN
     Dosage: 1 g, prn
     Route: 048
  11. ZECLAR [Concomitant]
     Dosage: 500 mg, bid
     Route: 048
  12. EXOMUC [Concomitant]
     Dosage: 200 mg, qd
     Route: 048
  13. LAMALINE                           /00764901/ [Concomitant]
     Dosage: 340 mg, qd
     Route: 048
  14. AUGMENTIN                          /00756801/ [Concomitant]
     Dosage: 500 mg, bid
     Route: 048

REACTIONS (1)
  - Performance status decreased [Recovered/Resolved]
